FAERS Safety Report 6699915-3 (Version None)
Quarter: 2010Q2

REPORT INFORMATION
  Report Type: 
  Country: None (occurrence: None)
  Receive Date: 20100419
  Receipt Date: 20090915
  Transmission Date: 20101027
  Serious: Yes (Other)
  Sender: FDA-Public Use
  Company Number: 09-001487

PATIENT
  Age: 31 Year
  Sex: Female
  Weight: 96.6 kg

DRUGS (1)
  1. LOESTRIN 24 FE [Suspect]
     Indication: ORAL CONTRACEPTION
     Dosage: 20/1000UG, QD, ORAL
     Route: 048
     Dates: start: 20080701, end: 20081001

REACTIONS (1)
  - PULMONARY EMBOLISM [None]
